FAERS Safety Report 5956893-X (Version None)
Quarter: 2008Q4

REPORT INFORMATION
  Report Type: 
  Country: None (occurrence: None)
  Receive Date: 20081117
  Receipt Date: 20081117
  Transmission Date: 20090506
  Serious: Yes (Hospitalization)
  Sender: FDA-Public Use
  Company Number: None

PATIENT
  Sex: Female
  Weight: 75.7 kg

DRUGS (7)
  1. ALIMTA [Suspect]
     Indication: BONE SARCOMA
     Dosage: 935MG IV, 656NG IV
     Route: 042
     Dates: start: 20081014
  2. ALIMTA [Suspect]
     Indication: BONE SARCOMA
     Dosage: 935MG IV, 656NG IV
     Route: 042
     Dates: start: 20081028
  3. TAXOTERE [Suspect]
     Dosage: 74.8MG IV, 75.6MG IV
     Route: 042
     Dates: start: 20081014
  4. TAXOTERE [Suspect]
     Dosage: 74.8MG IV, 75.6MG IV
     Route: 042
     Dates: start: 20081028
  5. FOLIC ACID [Concomitant]
  6. VICODIN [Concomitant]
  7. DECADRON [Concomitant]

REACTIONS (4)
  - DYSPNOEA [None]
  - PLEURAL EFFUSION [None]
  - PNEUMONIA [None]
  - PYREXIA [None]
